FAERS Safety Report 26066725 (Version 4)
Quarter: 2025Q4

REPORT INFORMATION
  Report Type: Spontaneous
  Country: UY (occurrence: UY)
  Receive Date: 20251119
  Receipt Date: 20251224
  Transmission Date: 20260117
  Serious: No
  Sender: PFIZER
  Company Number: UY-PFIZER INC-202500226025

PATIENT
  Age: 6 Year
  Sex: Female

DRUGS (1)
  1. GENOTROPIN [Suspect]
     Active Substance: SOMATROPIN
     Indication: Growth hormone deficiency
     Dosage: 0.6 TO 1 MG, DAILY (7 TIMES PER WEEK)
     Dates: start: 20230831, end: 20251112

REACTIONS (4)
  - Drug dose omission by device [Not Recovered/Not Resolved]
  - Device information output issue [Not Recovered/Not Resolved]
  - Device mechanical issue [Unknown]
  - Device electrical impedance issue [Unknown]

NARRATIVE: CASE EVENT DATE: 20251112
